FAERS Safety Report 8482210-X (Version None)
Quarter: 2012Q3

REPORT INFORMATION
  Report Type: 
  Country: None (occurrence: None)
  Receive Date: 20120702
  Receipt Date: 20120618
  Transmission Date: 20120928
  Serious: No
  Sender: FDA-Public Use
  Company Number: US-ASTRAZENECA-2011SE33699

PATIENT
  Age: 88 Year
  Sex: Female

DRUGS (2)
  1. VERAPAMIL [Concomitant]
  2. CRESTOR [Suspect]
     Route: 048

REACTIONS (7)
  - EYE SWELLING [None]
  - CARDIAC DISORDER [None]
  - MALAISE [None]
  - NERVOUSNESS [None]
  - PAIN [None]
  - MULTIPLE ALLERGIES [None]
  - CONFUSIONAL STATE [None]
